FAERS Safety Report 4425184-0 (Version None)
Quarter: 2004Q3

REPORT INFORMATION
  Report Type: 
  Country: None (occurrence: None)
  Receive Date: 20040812
  Receipt Date: 20040812
  Transmission Date: 20050211
  Serious: Yes (Other)
  Sender: FDA-Public Use
  Company Number: None

PATIENT

DRUGS (1)
  1. IOBENGUANE SULFATE I 131 [Suspect]
     Indication: PHAEOCHROMOCYTOMA
     Dosage: IV 1.5 ML
     Route: 042
     Dates: start: 20040713

REACTIONS (4)
  - DIZZINESS [None]
  - DYSPNOEA [None]
  - NAUSEA [None]
  - POST PROCEDURAL COMPLICATION [None]
